FAERS Safety Report 7206370-3 (Version None)
Quarter: 2011Q1

REPORT INFORMATION
  Report Type: 
  Country: None (occurrence: None)
  Receive Date: 20110103
  Receipt Date: 20110103
  Transmission Date: 20110831
  Serious: Yes (Hospitalization)
  Sender: FDA-Public Use
  Company Number: PHHO2007DE05413

PATIENT
  Sex: Female
  Weight: 64 kg

DRUGS (1)
  1. CERTICAN [Suspect]
     Indication: CONGENITAL CYSTIC KIDNEY DISEASE
     Dosage: UNK
     Route: 048
     Dates: start: 20070228, end: 20070320

REACTIONS (6)
  - HERPES ZOSTER [None]
  - LEUKOPENIA [None]
  - MOUTH ULCERATION [None]
  - PAIN [None]
  - APHTHOUS STOMATITIS [None]
  - TONGUE ULCERATION [None]
